FAERS Safety Report 6030867-5 (Version None)
Quarter: 2009Q1

REPORT INFORMATION
  Report Type: 
  Country: None (occurrence: None)
  Receive Date: 20090107
  Receipt Date: 20081231
  Transmission Date: 20090719
  Serious: Yes (Other)
  Sender: FDA-Public Use
  Company Number: US-ALLERGAN-0816456US

PATIENT
  Sex: Female

DRUGS (7)
  1. COMBIGAN [Suspect]
     Indication: GLAUCOMA
     Dosage: UNK, UNK
     Route: 047
     Dates: start: 20081111, end: 20081230
  2. HYZAAR [Concomitant]
     Indication: HYPERTENSION
  3. ZOCOR [Concomitant]
     Indication: BLOOD CHOLESTEROL INCREASED
  4. GLUCOPHAGE [Concomitant]
     Indication: DIABETES MELLITUS
  5. METOPROLOL [Concomitant]
     Indication: HYPERTENSION
  6. ACIPHEX [Concomitant]
     Indication: GASTROOESOPHAGEAL REFLUX DISEASE
  7. SYNTHROID [Concomitant]
     Indication: DRUG USE FOR UNKNOWN INDICATION

REACTIONS (4)
  - CHEST PAIN [None]
  - DRY MOUTH [None]
  - DYSPNOEA [None]
  - HEADACHE [None]
